FAERS Safety Report 6686832-8 (Version None)
Quarter: 2010Q2

REPORT INFORMATION
  Report Type: 
  Country: None (occurrence: None)
  Receive Date: 20100419
  Receipt Date: 20100416
  Transmission Date: 20101027
  Serious: Yes (Hospitalization)
  Sender: FDA-Public Use
  Company Number: US-BRISTOL-MYERS SQUIBB COMPANY-15020589

PATIENT
  Age: 73 Year
  Sex: Female
  Weight: 59 kg

DRUGS (8)
  1. ERBITUX [Suspect]
     Indication: NON-SMALL CELL LUNG CANCER
     Dosage: RECENT INF : 09MAR2010. COURSE NO ON WHICH EVENT OCCUR:71,78. TOTAL COURSE:78;RECENT-16MAR2010
     Dates: start: 20091229
  2. CARBOPLATIN [Suspect]
     Indication: NON-SMALL CELL LUNG CANCER
  3. TAXOL [Suspect]
     Indication: NON-SMALL CELL LUNG CANCER
  4. RADIATION THERAPY [Suspect]
     Indication: NON-SMALL CELL LUNG CANCER
     Dosage: 1DF=74GY;NO-37 2GY/D ALSO ON6,8,11-15,18-22,25-26,28-29JAN 2-4,9-12,15FEB 1-5,8-12,15-16MAR
     Dates: start: 20100105
  5. LORAZEPAM [Concomitant]
  6. METOCLOPRAMIDE HYDROCHLORIDE [Concomitant]
  7. ONDANSETRON [Concomitant]
  8. PROCHLORPERAZINE [Concomitant]

REACTIONS (3)
  - DEHYDRATION [None]
  - OESOPHAGITIS [None]
  - WHITE BLOOD CELL COUNT DECREASED [None]
